FAERS Safety Report 9516988 (Version 1)
Quarter: 2013Q1

REPORT INFORMATION
  Report Type: Spontaneous
  Country: US (occurrence: None)
  Receive Date: 20130305
  Receipt Date: 20130305
  Transmission Date: 20140127
  Serious: Yes (Other)
  Sender: FDA-Public Use
  Company Number: 163-21880-12081159

PATIENT
  Age: 60 Year
  Sex: Female

DRUGS (8)
  1. REVLIMID (LENALIDOMIDE) [Suspect]
     Indication: PLASMA CELL MYELOMA
     Route: 048
     Dates: start: 20111031
  2. ASPIRIN (ACETYLSALICYLIC ACID) [Concomitant]
  3. BACTRIM [Concomitant]
  4. CALCIUM [Concomitant]
  5. EFFEXOR (VENLAFAXINE HYDROCHLORIDE) [Concomitant]
  6. MULTIVITAMINS [Concomitant]
  7. OMEPRAZOLE [Concomitant]
  8. CEFUROXIME [Concomitant]

REACTIONS (2)
  - Urinary tract infection [None]
  - Constipation [None]
